FAERS Safety Report 5935036-2 (Version None)
Quarter: 2008Q4

REPORT INFORMATION
  Report Type: 
  Country: None (occurrence: None)
  Receive Date: 20081028
  Receipt Date: 20081013
  Transmission Date: 20090506
  Serious: Yes (Disabling)
  Sender: FDA-Public Use
  Company Number: DSU-2008-01695

PATIENT
  Sex: Female

DRUGS (2)
  1. OLMESARTAN MEDOXOMIL AND HYDROCHLOROTHIZIDE [Suspect]
     Indication: BLOOD PRESSURE ABNORMAL
     Dosage: 40/12.5 MG (QD), PER ORAL
     Route: 048
     Dates: start: 20080901
  2. NORVASC [Concomitant]

REACTIONS (2)
  - BEDRIDDEN [None]
  - BLOOD PRESSURE ABNORMAL [None]
